FAERS Safety Report 7283209-1 (Version None)
Quarter: 2011Q1

REPORT INFORMATION
  Report Type: 
  Country: None (occurrence: None)
  Receive Date: 20110209
  Receipt Date: 20110130
  Transmission Date: 20110831
  Serious: Yes (Other)
  Sender: FDA-Public Use
  Company Number: US-RB-020262-11

PATIENT
  Age: 81 Year
  Sex: Female

DRUGS (3)
  1. BENCAR [Concomitant]
  2. METROPOLOL [Concomitant]
  3. MUCINEX [Suspect]
     Route: 048

REACTIONS (1)
  - HAEMOPTYSIS [None]
